FAERS Safety Report 6679846-5 (Version None)
Quarter: 2010Q2

REPORT INFORMATION
  Report Type: 
  Country: None (occurrence: None)
  Receive Date: 20100409
  Receipt Date: 20100331
  Transmission Date: 20101027
  Serious: No
  Sender: FDA-Public Use
  Company Number: 2010-00376

PATIENT
  Age: 30 Year
  Sex: Male
  Weight: 68.0396 kg

DRUGS (1)
  1. ZICAM COLD REMEDY NASAL GEL [Suspect]
     Dosage: TID - 3 DOSES
     Dates: start: 20041110, end: 20041110

REACTIONS (1)
  - ANOSMIA [None]
